FAERS Safety Report 4972386-0 (Version None)
Quarter: 2006Q2

REPORT INFORMATION
  Report Type: 
  Country: None (occurrence: None)
  Receive Date: 20060413
  Receipt Date: 20060313
  Transmission Date: 20061013
  Serious: Yes (Other)
  Sender: FDA-Public Use
  Company Number: US-MERCK-0603USA02227

PATIENT
  Age: 56 Year
  Sex: Female
  Weight: 82 kg

DRUGS (23)
  1. VIOXX [Suspect]
     Indication: ARTHRITIS
     Route: 048
     Dates: start: 20001001, end: 20041001
  2. PROZAC [Concomitant]
     Route: 065
  3. TRIMOX [Concomitant]
     Route: 065
  4. MEPROBAMATE [Concomitant]
     Route: 065
  5. AVELOX [Concomitant]
     Route: 065
  6. GUAIFENESIN AND PHENYLPROPANOLAMINE HYDROCHLORIDE [Concomitant]
     Route: 065
  7. PROMETHAZINE [Concomitant]
     Route: 065
  8. PROPOXYPHENE NAPSYLATE [Concomitant]
     Route: 065
  9. MIPROXIFENE [Concomitant]
     Route: 065
  10. PREVACID [Concomitant]
     Route: 065
  11. PREMARIN [Concomitant]
     Route: 065
  12. ZITHROMAX [Concomitant]
     Route: 065
  13. CLARITIN-D [Concomitant]
     Route: 065
  14. NASACORT [Concomitant]
     Route: 065
  15. TUSSIONEX (CHLORPHENIRAMINE POLISTIREX (+) HYDROCODONE POLISTIREX) [Concomitant]
     Route: 065
  16. METHYLPREDNISOLONE [Concomitant]
     Route: 065
  17. EFFEXOR [Concomitant]
     Route: 065
  18. NAPROXEN [Concomitant]
     Route: 065
  19. CODOLAX [Concomitant]
     Route: 065
  20. ATENOLOL [Concomitant]
     Route: 065
  21. METHOTREXATE [Concomitant]
     Route: 065
  22. HYDROCODONE BITARTRATE [Concomitant]
     Route: 065
  23. PRILOSEC [Concomitant]
     Route: 065

REACTIONS (2)
  - ANXIETY [None]
  - CEREBROVASCULAR ACCIDENT [None]
